FAERS Safety Report 4332740-7 (Version None)
Quarter: 2004Q1

REPORT INFORMATION
  Report Type: 
  Country: None (occurrence: None)
  Receive Date: 20040330
  Receipt Date: 20040318
  Transmission Date: 20041129
  Serious: No
  Sender: FDA-Public Use
  Company Number: 04P-163-0254335-00

PATIENT
  Age: 44 Year
  Sex: Male
  Weight: 84.8226 kg

DRUGS (3)
  1. HUMIRA [Suspect]
     Indication: RHEUMATOID ARTHRITIS
     Dosage: 40 MG, SUBCUTANEOUS
     Route: 058
     Dates: start: 20030924, end: 20031201
  2. PREDNISONE [Concomitant]
  3. CELECOXIB [Concomitant]

REACTIONS (1)
  - HAIRY CELL LEUKAEMIA [None]
